FAERS Safety Report 9860746 (Version 1)
Quarter: 2014Q1

REPORT INFORMATION
  Report Type: Spontaneous
  Country: GB (occurrence: None)
  Receive Date: 20140130
  Receipt Date: 20140130
  Transmission Date: 20141002
  Serious: Yes (Other)
  Sender: FDA-Public Use
  Company Number: FK201400253

PATIENT
  Age: 52 Year
  Sex: Female

DRUGS (2)
  1. METHOTREXATE [Suspect]
     Indication: PSORIASIS
  2. TRIFOLIUM PRATENSE [Suspect]
     Indication: MENOPAUSAL SYMPTOMS

REACTIONS (4)
  - Vomiting [None]
  - Abdominal pain upper [None]
  - Toxicity to various agents [None]
  - Drug interaction [None]
